FAERS Safety Report 6567380-2 (Version None)
Quarter: 2010Q1

REPORT INFORMATION
  Report Type: 
  Country: None (occurrence: None)
  Receive Date: 20100202
  Receipt Date: 20100128
  Transmission Date: 20100710
  Serious: Yes (Life-Threatening, Hospitalization)
  Sender: FDA-Public Use
  Company Number: PHHY2010NL04898

PATIENT
  Sex: Female

DRUGS (1)
  1. LAMISIL [Suspect]
     Indication: ONYCHOMYCOSIS
     Dosage: 1 DF PER DAY
     Route: 048
     Dates: start: 20091224, end: 20100121

REACTIONS (2)
  - ANGIOPLASTY [None]
  - MYOCARDIAL INFARCTION [None]
